FAERS Safety Report 7744745-4 (Version None)
Quarter: 2011Q3

REPORT INFORMATION
  Report Type: 
  Country: None (occurrence: None)
  Receive Date: 20110912
  Receipt Date: 20110912
  Transmission Date: 20111222
  Serious: Yes (Other)
  Sender: FDA-Public Use
  Company Number: None

PATIENT
  Age: 59 Year
  Sex: Female
  Weight: 111.13 kg

DRUGS (2)
  1. LETROZOLE [Suspect]
     Indication: PROPHYLAXIS
     Dates: start: 20110627, end: 20110830
  2. LETROZOLE [Suspect]
     Indication: BREAST CANCER
     Dates: start: 20110627, end: 20110830

REACTIONS (7)
  - PRODUCT SUBSTITUTION ISSUE [None]
  - ARTHRALGIA [None]
  - INSOMNIA [None]
  - JOINT STIFFNESS [None]
  - JOINT SWELLING [None]
  - PAIN IN EXTREMITY [None]
  - MOBILITY DECREASED [None]
